FAERS Safety Report 9238913 (Version 2)
Quarter: 2013Q3

REPORT INFORMATION
  Report Type: Spontaneous
  Country: US (occurrence: None)
  Receive Date: 20121102
  Receipt Date: 20130903
  Transmission Date: 20140515
  Serious: Yes (Hospitalization)
  Sender: FDA-Public Use
  Company Number: 123837

PATIENT
  Age: 43 Year
  Sex: Female
  Weight: 62 kg

DRUGS (1)
  1. LEUCOVORIN CALCIUM FOR INJ. 50MG - BEDFORD LABS, INC. [Suspect]
     Indication: COLORECTAL CANCER METASTATIC
     Dosage: 400 MG/M2, DAY ONE EVERY 14 DAYS
     Dates: start: 20110906

REACTIONS (11)
  - Febrile neutropenia [None]
  - Intestinal obstruction [None]
  - Mucosal inflammation [None]
  - Stomatitis [None]
  - Thrombocytopenia [None]
  - Hypokalaemia [None]
  - Eastern Cooperative Oncology Group performance status worsened [None]
  - Constipation [None]
  - Malignant neoplasm progression [None]
  - Colorectal cancer metastatic [None]
  - Blood bilirubin increased [None]
